FAERS Safety Report 11088728 (Version 3)
Quarter: 2015Q3

REPORT INFORMATION
  Report Type: Spontaneous
  Country: US (occurrence: US)
  Receive Date: 20150504
  Receipt Date: 20150730
  Transmission Date: 20151125
  Serious: Yes (Death, Other)
  Sender: FDA-Public Use
  Company Number: US-GLAXOSMITHKLINE-US2015GSK058889

PATIENT
  Sex: Female
  Weight: 61.7 kg

DRUGS (20)
  1. COPAXONE [Concomitant]
     Active Substance: GLATIRAMER ACETATE
  2. BYSTOLIC [Concomitant]
     Active Substance: NEBIVOLOL HYDROCHLORIDE
  3. COLACE [Concomitant]
     Active Substance: DOCUSATE SODIUM
  4. ONDANSETRON [Concomitant]
     Active Substance: ONDANSETRON
  5. BENZONATATE. [Concomitant]
     Active Substance: BENZONATATE
  6. AMPYRA [Concomitant]
     Active Substance: DALFAMPRIDINE
  7. DOXYCYCLINE. [Concomitant]
     Active Substance: DOXYCYCLINE
  8. OLANZAPINE. [Concomitant]
     Active Substance: OLANZAPINE
  9. METHENAMINE HIPPURATE. [Concomitant]
     Active Substance: METHENAMINE HIPPURATE
  10. X-VIATE [Concomitant]
     Active Substance: UREA
  11. VOTRIENT [Suspect]
     Active Substance: PAZOPANIB HYDROCHLORIDE
     Indication: BLADDER CANCER
     Dosage: 800 MG, QD
     Route: 048
     Dates: start: 20150202, end: 201504
  12. VITAMIN D [Concomitant]
     Active Substance: CHOLECALCIFEROL
  13. VITAMIN C [Concomitant]
     Active Substance: ASCORBIC ACID
  14. CALCIUM [Concomitant]
     Active Substance: CALCIUM
  15. AMLODIPINE [Concomitant]
     Active Substance: AMLODIPINE BESYLATE
  16. BACLOFEN. [Concomitant]
     Active Substance: BACLOFEN
  17. VOTRIENT [Suspect]
     Active Substance: PAZOPANIB HYDROCHLORIDE
     Dosage: 800 MG, QD
     Route: 048
     Dates: start: 201504
  18. LISINOPRIL. [Concomitant]
     Active Substance: LISINOPRIL
  19. IMURAN [Concomitant]
     Active Substance: AZATHIOPRINE
  20. METHENAMINE MANDELATE. [Concomitant]
     Active Substance: METHENAMINE MANDELATE

REACTIONS (3)
  - Death [Fatal]
  - Blood pressure increased [Unknown]
  - Nausea [Unknown]
